FAERS Safety Report 21818917 (Version 3)
Quarter: 2023Q1

REPORT INFORMATION
  Report Type: Report from Study
  Country: TH (occurrence: TH)
  Receive Date: 20230104
  Receipt Date: 20230307
  Transmission Date: 20230418
  Serious: Yes (Other)
  Sender: FDA-Public Use
  Company Number: TH-TAKEDA-2022TUS103925

PATIENT
  Age: 52 Year
  Sex: Female
  Weight: 42.9 kg

DRUGS (5)
  1. MOBOCERTINIB [Suspect]
     Active Substance: MOBOCERTINIB
     Indication: Lung adenocarcinoma stage IV
     Dosage: 160 MILLIGRAM, QD
     Route: 048
     Dates: start: 20220912, end: 20220923
  2. MOBOCERTINIB [Suspect]
     Active Substance: MOBOCERTINIB
     Dosage: 120 MILLIGRAM, QD
     Route: 065
     Dates: start: 20221003, end: 20221213
  3. WARFARIN [Concomitant]
     Active Substance: WARFARIN
     Indication: Antiphospholipid syndrome
     Dosage: 3 MILLIGRAM, QD
     Route: 048
     Dates: start: 2004
  4. PREDNISOLONE [Concomitant]
     Active Substance: PREDNISOLONE
     Indication: Systemic lupus erythematosus
     Dosage: 7.5 MILLIGRAM, QD
     Route: 048
     Dates: start: 201911
  5. LEVOTHYROXINE [Concomitant]
     Active Substance: LEVOTHYROXINE
     Indication: Hypothyroidism
     Dosage: 25 MICROGRAM, QD
     Route: 048
     Dates: start: 202001

REACTIONS (2)
  - Lung adenocarcinoma stage IV [Unknown]
  - Diarrhoea [Recovered/Resolved]

NARRATIVE: CASE EVENT DATE: 20220915
